FAERS Safety Report 9801488 (Version 2)
Quarter: 2014Q1

REPORT INFORMATION
  Report Type: Spontaneous
  Country: US (occurrence: US)
  Receive Date: 20140107
  Receipt Date: 20140107
  Transmission Date: 20141002
  Serious: No
  Sender: FDA-Public Use
  Company Number: US-GILEAD-US-CVT-100420

PATIENT
  Sex: Male

DRUGS (7)
  1. RANEXA [Suspect]
     Indication: PRODUCT USED FOR UNKNOWN INDICATION
  2. TOPROL XL [Concomitant]
  3. NITROSTAT [Concomitant]
  4. CRESTOR /01588601/ [Concomitant]
  5. ECOTRIN [Concomitant]
  6. VITAMIN D [Concomitant]
  7. CENTRUM SILVER [Concomitant]

REACTIONS (2)
  - Visual impairment [Unknown]
  - Corneal dystrophy [Unknown]
